FAERS Safety Report 13815746 (Version 4)
Quarter: 2017Q3

REPORT INFORMATION
  Report Type: Report from Study
  Country: AR (occurrence: AR)
  Receive Date: 20170731
  Receipt Date: 20170901
  Transmission Date: 20171127
  Serious: Yes (Life-Threatening, Other)
  Sender: FDA-Public Use
  Company Number: PHHY2017AR095941

PATIENT
  Age: 43 Year
  Sex: Female

DRUGS (8)
  1. COSENTYX [Suspect]
     Active Substance: SECUKINUMAB
     Indication: PSORIASIS
     Dosage: 150 MG, ONE EVERY 15 DAYS
     Route: 065
  2. NAPRUX [Suspect]
     Active Substance: NAPROXEN
     Indication: MUSCULOSKELETAL PAIN
     Dosage: 500 MG, UNK
     Route: 065
     Dates: start: 20170717
  3. OMEPRAZOLE. [Concomitant]
     Active Substance: OMEPRAZOLE
     Indication: PRODUCT USED FOR UNKNOWN INDICATION
     Route: 065
  4. COSENTYX [Suspect]
     Active Substance: SECUKINUMAB
     Dosage: 300 MG, QMO (150 MG 2 DOSES, ONE APPLICATION PER MONTH)
     Route: 065
     Dates: end: 201706
  5. COSENTYX [Suspect]
     Active Substance: SECUKINUMAB
     Indication: PSORIATIC ARTHROPATHY
     Dosage: UNK, QW
     Route: 065
  6. PREGABALIN. [Suspect]
     Active Substance: PREGABALIN
     Indication: PRODUCT USED FOR UNKNOWN INDICATION
     Dosage: 75 MG, UNK
     Route: 065
     Dates: start: 201703
  7. USTEKINUMAB [Suspect]
     Active Substance: USTEKINUMAB
     Indication: PRODUCT USED FOR UNKNOWN INDICATION
     Route: 065
  8. ENALAPRIL [Suspect]
     Active Substance: ENALAPRIL
     Indication: ASTHMA
     Dosage: 5 OT, UNK
     Route: 065

REACTIONS (19)
  - Apparent death [Recovered/Resolved]
  - Abdominal pain upper [Unknown]
  - Hypersensitivity [Recovered/Resolved]
  - Inappropriate schedule of drug administration [Unknown]
  - Spinal pain [Recovered/Resolved]
  - Anxiety [Unknown]
  - Localised infection [Recovering/Resolving]
  - Alopecia [Unknown]
  - Drug intolerance [Unknown]
  - Pain in extremity [Recovered/Resolved]
  - Gait disturbance [Unknown]
  - Malaise [Unknown]
  - Arthralgia [Recovered/Resolved]
  - Musculoskeletal pain [Unknown]
  - Dyspnoea [Recovered/Resolved]
  - Drug ineffective [Unknown]
  - Hypertension [Recovered/Resolved]
  - Bone pain [Not Recovered/Not Resolved]
  - Psoriasis [Not Recovered/Not Resolved]

NARRATIVE: CASE EVENT DATE: 201611
